FAERS Safety Report 8036162-7 (Version None)
Quarter: 2012Q1

REPORT INFORMATION
  Report Type: 
  Country: None (occurrence: None)
  Receive Date: 20120106
  Receipt Date: 20111222
  Transmission Date: 20120608
  Serious: Yes (Hospitalization, Other)
  Sender: FDA-Public Use
  Company Number: 2011SP059427

PATIENT
  Age: 60 Year
  Sex: Female
  Weight: 45 kg

DRUGS (5)
  1. INSULIN [Concomitant]
  2. VELCADE [Suspect]
     Indication: MULTIPLE MYELOMA
     Dosage: QW
  3. DEXAMETHASONE TAB [Suspect]
     Indication: MULTIPLE MYELOMA
     Dosage: 12 MG;BIW
  4. CYCLOPHOSPHAMIDE [Suspect]
     Indication: MULTIPLE MYELOMA
  5. THALIDOMIDE [Suspect]
     Indication: MULTIPLE MYELOMA

REACTIONS (11)
  - DRUG INTOLERANCE [None]
  - TREMOR [None]
  - EPILEPSY [None]
  - HYPOGLYCAEMIA [None]
  - DECREASED APPETITE [None]
  - BLOOD GLUCOSE FLUCTUATION [None]
  - SOMNOLENCE [None]
  - HYPOTENSION [None]
  - TACHYCARDIA [None]
  - ARTHRALGIA [None]
  - PNEUMONIA [None]
